FAERS Safety Report 14211287 (Version 1)
Quarter: 2017Q4

REPORT INFORMATION
  Report Type: Spontaneous
  Country: JP (occurrence: JP)
  Receive Date: 20171121
  Receipt Date: 20171121
  Transmission Date: 20180321
  Serious: Yes (Other)
  Sender: FDA-Public Use
  Company Number: PHHY2017JP168301

PATIENT
  Age: 59 Year
  Sex: Male

DRUGS (2)
  1. FILGRASTIM [Suspect]
     Active Substance: FILGRASTIM
     Indication: NEUTROPENIA
     Dosage: UNK UNK, QOD
     Route: 065
  2. FILGRASTIM [Suspect]
     Active Substance: FILGRASTIM
     Dosage: UNK UNK, QD
     Route: 065

REACTIONS (4)
  - Pyoderma gangrenosum [Recovered/Resolved]
  - Incision site pain [Unknown]
  - Ulcer [Unknown]
  - Incision site erythema [Unknown]
